FAERS Safety Report 17123447 (Version 1)
Quarter: 2019Q4

REPORT INFORMATION
  Report Type: Spontaneous
  Country: US (occurrence: US)
  Receive Date: 20191206
  Receipt Date: 20191206
  Transmission Date: 20200122
  Serious: Yes (Hospitalization)
  Sender: FDA-Public Use
  Company Number: US-CELGENEUS-USA-20191202049

PATIENT
  Age: 56 Year
  Sex: Female
  Weight: 62.2 kg

DRUGS (53)
  1. ABRAXANE [Suspect]
     Active Substance: PACLITAXEL
     Dosage: 125 MILLIGRAM/SQ. METER
     Route: 065
     Dates: start: 20190314, end: 20190314
  2. ABRAXANE [Suspect]
     Active Substance: PACLITAXEL
     Dosage: 125 MG/M2
     Route: 065
     Dates: start: 20190701, end: 20190701
  3. ABRAXANE [Suspect]
     Active Substance: PACLITAXEL
     Dosage: 125 MG/M2
     Route: 065
     Dates: start: 20190718, end: 20190718
  4. GEMCITABINE. [Suspect]
     Active Substance: GEMCITABINE
     Dosage: 1000 MILLIGRAM/SQ. METER
     Route: 065
     Dates: start: 20190117, end: 20190117
  5. GEMCITABINE. [Suspect]
     Active Substance: GEMCITABINE
     Dosage: 1000 MG/M2
     Route: 065
     Dates: start: 20190411, end: 20190411
  6. GEMCITABINE. [Suspect]
     Active Substance: GEMCITABINE
     Dosage: 1000 MG/M2
     Route: 065
     Dates: start: 20191010, end: 20191010
  7. ABRAXANE [Suspect]
     Active Substance: PACLITAXEL
     Dosage: 125 MG/M2
     Route: 065
     Dates: start: 20190228, end: 20190228
  8. ABRAXANE [Suspect]
     Active Substance: PACLITAXEL
     Dosage: 125 MG/M2
     Route: 065
     Dates: start: 20190425, end: 20190425
  9. ABRAXANE [Suspect]
     Active Substance: PACLITAXEL
     Dosage: 125 MG/M2
     Route: 065
     Dates: start: 20190613, end: 20190613
  10. ABRAXANE [Suspect]
     Active Substance: PACLITAXEL
     Dosage: 125 MG/M2
     Route: 065
     Dates: start: 20190620, end: 20190620
  11. GEMCITABINE. [Suspect]
     Active Substance: GEMCITABINE
     Dosage: 1000 MG/M2
     Route: 065
     Dates: start: 20190221, end: 20190221
  12. GEMCITABINE. [Suspect]
     Active Substance: GEMCITABINE
     Dosage: 1000 MG/M2
     Route: 065
     Dates: start: 20190516, end: 20190516
  13. GEMCITABINE. [Suspect]
     Active Substance: GEMCITABINE
     Dosage: 1000 MG/M2
     Route: 065
     Dates: start: 20190718, end: 20190718
  14. ABRAXANE [Suspect]
     Active Substance: PACLITAXEL
     Dosage: 125 MILLIGRAM/SQ. METER
     Route: 065
     Dates: start: 20190117, end: 20190117
  15. ABRAXANE [Suspect]
     Active Substance: PACLITAXEL
     Dosage: 125 MG/M2
     Route: 065
     Dates: start: 20190516, end: 20190516
  16. GEMCITABINE. [Suspect]
     Active Substance: GEMCITABINE
     Dosage: 1000 MG/M2
     Route: 065
     Dates: start: 20190124, end: 20190124
  17. GEMCITABINE. [Suspect]
     Active Substance: GEMCITABINE
     Dosage: 1000 MG/M2
     Route: 065
     Dates: start: 20190228, end: 20190228
  18. GEMCITABINE. [Suspect]
     Active Substance: GEMCITABINE
     Dosage: 1000 MG/M2
     Route: 065
     Dates: start: 20190418, end: 20190418
  19. GEMCITABINE. [Suspect]
     Active Substance: GEMCITABINE
     Dosage: 1000 MG/M2
     Route: 065
     Dates: start: 20190613, end: 20190613
  20. GEMCITABINE. [Suspect]
     Active Substance: GEMCITABINE
     Dosage: 1000 MG/M2
     Route: 065
     Dates: start: 20190808, end: 20190808
  21. GEMCITABINE. [Suspect]
     Active Substance: GEMCITABINE
     Dosage: 1000 MG/M2
     Route: 065
     Dates: start: 20190905, end: 20190905
  22. ABRAXANE [Suspect]
     Active Substance: PACLITAXEL
     Dosage: 125 MG/M2
     Route: 065
     Dates: start: 20190411, end: 20190411
  23. GEMCITABINE. [Suspect]
     Active Substance: GEMCITABINE
     Dosage: 1000 MG/M2
     Route: 065
     Dates: start: 20190207, end: 20190207
  24. GEMCITABINE. [Suspect]
     Active Substance: GEMCITABINE
     Dosage: 1000 MG/M2
     Route: 065
     Dates: start: 20190509, end: 20190509
  25. GEMCITABINE. [Suspect]
     Active Substance: GEMCITABINE
     Dosage: 1000 MG/M2
     Route: 065
     Dates: start: 20190620, end: 20190620
  26. GEMCITABINE. [Suspect]
     Active Substance: GEMCITABINE
     Dosage: 1000 MG/M2
     Route: 065
     Dates: start: 20190701, end: 20190701
  27. GEMCITABINE. [Suspect]
     Active Substance: GEMCITABINE
     Dosage: 1000 MG/M2
     Route: 065
     Dates: start: 20190801, end: 20190801
  28. GEMCITABINE. [Suspect]
     Active Substance: GEMCITABINE
     Dosage: 1000 MG/M2
     Route: 065
     Dates: start: 20190926, end: 20190926
  29. ABRAXANE [Suspect]
     Active Substance: PACLITAXEL
     Dosage: 125 MG/M2
     Route: 065
     Dates: start: 20190711, end: 20190711
  30. ABRAXANE [Suspect]
     Active Substance: PACLITAXEL
     Dosage: 125 MG/M2
     Route: 065
     Dates: start: 20190926, end: 20190926
  31. GEMCITABINE. [Suspect]
     Active Substance: GEMCITABINE
     Dosage: 1000 MG/M2
     Route: 065
     Dates: start: 20190314, end: 20190314
  32. GEMCITABINE. [Suspect]
     Active Substance: GEMCITABINE
     Dosage: 1000 MG/M2
     Route: 065
     Dates: start: 20190328, end: 20190328
  33. GEMCITABINE. [Suspect]
     Active Substance: GEMCITABINE
     Dosage: 1000 MG/M2
     Route: 065
     Dates: start: 20190523, end: 20190523
  34. ABRAXANE [Suspect]
     Active Substance: PACLITAXEL
     Dosage: 125 MILLIGRAM/SQ. METER
     Route: 065
     Dates: start: 20190124, end: 20190124
  35. ABRAXANE [Suspect]
     Active Substance: PACLITAXEL
     Dosage: 125 MILLIGRAM/SQ. METER
     Route: 065
     Dates: start: 20190207, end: 20190207
  36. ABRAXANE [Suspect]
     Active Substance: PACLITAXEL
     Dosage: 125 MILLIGRAM/SQ. METER
     Route: 065
     Dates: start: 20190221, end: 20190221
  37. ABRAXANE [Suspect]
     Active Substance: PACLITAXEL
     Dosage: 125 MG/M2
     Route: 065
     Dates: start: 20190328, end: 20190328
  38. ABRAXANE [Suspect]
     Active Substance: PACLITAXEL
     Dosage: 125 MG/M2
     Route: 065
     Dates: start: 20190509, end: 20190509
  39. ABRAXANE [Suspect]
     Active Substance: PACLITAXEL
     Dosage: 125 MG/M2
     Route: 065
     Dates: start: 20190523, end: 20190523
  40. ABRAXANE [Suspect]
     Active Substance: PACLITAXEL
     Dosage: 125 MG/M2
     Route: 065
     Dates: start: 20190606, end: 20190606
  41. ABRAXANE [Suspect]
     Active Substance: PACLITAXEL
     Dosage: 125 MG/M2
     Route: 065
     Dates: start: 20190905, end: 20190905
  42. ABRAXANE [Suspect]
     Active Substance: PACLITAXEL
     Dosage: 125 MG/M2
     Route: 065
     Dates: start: 20190912, end: 20190912
  43. GEMCITABINE. [Suspect]
     Active Substance: GEMCITABINE
     Dosage: 1000 MG/M2
     Route: 065
     Dates: start: 20190425, end: 20190425
  44. GEMCITABINE. [Suspect]
     Active Substance: GEMCITABINE
     Dosage: 1000 MG/M2
     Route: 065
     Dates: start: 20190815, end: 20190815
  45. GEMCITABINE. [Suspect]
     Active Substance: GEMCITABINE
     Dosage: 1000 MG/M2
     Route: 065
     Dates: start: 20190829, end: 20190829
  46. GEMCITABINE. [Suspect]
     Active Substance: GEMCITABINE
     Dosage: 1000 MG/M2
     Route: 065
     Dates: start: 20190912, end: 20190912
  47. ABRAXANE [Suspect]
     Active Substance: PACLITAXEL
     Dosage: 125 MG/M2
     Route: 065
     Dates: start: 20190829, end: 20190829
  48. GEMCITABINE. [Suspect]
     Active Substance: GEMCITABINE
     Indication: DUCTAL ADENOCARCINOMA OF PANCREAS
     Dosage: 1000 MILLIGRAM/SQ. METER
     Route: 065
     Dates: start: 20190110, end: 20190110
  49. GEMCITABINE. [Suspect]
     Active Substance: GEMCITABINE
     Dosage: 1000 MG/M2
     Route: 065
     Dates: start: 20190711, end: 20190711
  50. ABRAXANE [Suspect]
     Active Substance: PACLITAXEL
     Indication: DUCTAL ADENOCARCINOMA OF PANCREAS
     Dosage: 125 MILLIGRAM/SQ. METER
     Route: 065
     Dates: start: 20190110, end: 20190110
  51. ABRAXANE [Suspect]
     Active Substance: PACLITAXEL
     Dosage: 125 MG/M2
     Route: 065
     Dates: start: 20190808, end: 20190808
  52. ABRAXANE [Suspect]
     Active Substance: PACLITAXEL
     Dosage: 125 MG/M2
     Route: 065
     Dates: start: 20190815, end: 20190815
  53. GEMCITABINE. [Suspect]
     Active Substance: GEMCITABINE
     Dosage: 1000 MG/M2
     Route: 065
     Dates: start: 20190606, end: 20190606

REACTIONS (1)
  - Large intestinal obstruction [Not Recovered/Not Resolved]

NARRATIVE: CASE EVENT DATE: 20191124
